FAERS Safety Report 11298376 (Version 1)
Quarter: 2015Q3

REPORT INFORMATION
  Report Type: Spontaneous
  Country: US (occurrence: US)
  Receive Date: 20150722
  Receipt Date: 20150722
  Transmission Date: 20151125
  Serious: No
  Sender: FDA-Public Use
  Company Number: US-ELI_LILLY_AND_COMPANY-US201109006618

PATIENT
  Sex: Female

DRUGS (2)
  1. EFFIENT [Suspect]
     Active Substance: PRASUGREL HYDROCHLORIDE
     Indication: STENT PLACEMENT
     Dosage: 10 MG, QD
  2. ASPIRIN. [Concomitant]
     Active Substance: ASPIRIN
     Dosage: UNK, UNKNOWN

REACTIONS (6)
  - Vision blurred [Unknown]
  - Joint swelling [Unknown]
  - Asthenia [Unknown]
  - Rash [Unknown]
  - Urinary tract infection [Unknown]
  - Incorrect product storage [Unknown]
